FAERS Safety Report 6267710-5 (Version None)
Quarter: 2009Q3

REPORT INFORMATION
  Report Type: 
  Country: None (occurrence: None)
  Receive Date: 20090714
  Receipt Date: 20090702
  Transmission Date: 20100115
  Serious: Yes (Congenital Anomaly, Other)
  Sender: FDA-Public Use
  Company Number: DK-GILEAD-2009-0022982

PATIENT

DRUGS (3)
  1. TRUVADA [Suspect]
     Indication: DRUG USE FOR UNKNOWN INDICATION
     Route: 064
  2. ABACAVIR/LAMIVUDINE [Concomitant]
     Route: 064
  3. REYATAZ [Concomitant]
     Route: 064

REACTIONS (1)
  - PARESIS [None]
